FAERS Safety Report 18611597 (Version 1)
Quarter: 2020Q4

REPORT INFORMATION
  Report Type: Spontaneous
  Country: US (occurrence: US)
  Receive Date: 20201211
  Receipt Date: 20201211
  Transmission Date: 20210114
  Serious: No
  Sender: FDA-Public Use
  Company Number: None

PATIENT
  Age: 81 Year
  Sex: Female

DRUGS (1)
  1. PRALUENT [Suspect]
     Active Substance: ALIROCUMAB
     Indication: DYSLIPIDAEMIA
     Dates: start: 20201112

REACTIONS (3)
  - Lip swelling [None]
  - Paraesthesia oral [None]
  - Hypoaesthesia oral [None]

NARRATIVE: CASE EVENT DATE: 20201127
